FAERS Safety Report 10095983 (Version 2)
Quarter: 2014Q2

REPORT INFORMATION
  Report Type: Spontaneous
  Country: US (occurrence: US)
  Receive Date: 20140422
  Receipt Date: 20140422
  Transmission Date: 20141212
  Serious: Yes (Other)
  Sender: FDA-Public Use
  Company Number: US-GILEAD-2013-0076765

PATIENT
  Age: 79 Year
  Sex: Female

DRUGS (3)
  1. LETAIRIS [Suspect]
     Indication: PULMONARY ARTERIAL HYPERTENSION
     Route: 048
     Dates: start: 20130412, end: 20130524
  2. LETAIRIS [Suspect]
     Indication: UNEVALUABLE EVENT
  3. LETAIRIS [Suspect]
     Indication: SCLERODERMA

REACTIONS (3)
  - Drug ineffective [Recovered/Resolved]
  - Asthenia [Recovered/Resolved]
  - Dyspnoea [Recovered/Resolved]
